FAERS Safety Report 9433181 (Version 1)
Quarter: 2013Q3

REPORT INFORMATION
  Report Type: Spontaneous
  Country: US (occurrence: US)
  Receive Date: 20130731
  Receipt Date: 20130731
  Transmission Date: 20140515
  Serious: Yes (Other)
  Sender: FDA-Public Use
  Company Number: US-GLAXOSMITHKLINE-A1035549A

PATIENT
  Age: 68 Year
  Sex: Female

DRUGS (2)
  1. ADVAIR [Suspect]
     Indication: PRODUCT USED FOR UNKNOWN INDICATION
     Route: 065
     Dates: start: 20101110
  2. UNSPECIFIED MEDICATIONS [Concomitant]

REACTIONS (4)
  - Liver transplant [Unknown]
  - Gastrointestinal disorder [Unknown]
  - Thyroid disorder [Unknown]
  - Diabetic complication [Unknown]
